FAERS Safety Report 10266827 (Version 1)
Quarter: 2014Q2

REPORT INFORMATION
  Report Type: Spontaneous
  Country: CA (occurrence: CA)
  Receive Date: 20140630
  Receipt Date: 20140630
  Transmission Date: 20141212
  Serious: Yes (Hospitalization)
  Sender: FDA-Public Use
  Company Number: CA-AMGEN-CANSP2014048222

PATIENT
  Age: 48 Year
  Sex: Female

DRUGS (2)
  1. NEULASTA [Suspect]
     Indication: NEUTROPHIL COUNT
     Dosage: 10 MG/ML, UNK
     Route: 065
     Dates: start: 20140615
  2. SEROQUEL [Concomitant]
     Dosage: 12 MG, QHS (AT NIGHT)

REACTIONS (3)
  - White blood cell count decreased [Recovering/Resolving]
  - Pyrexia [Recovering/Resolving]
  - Haemoglobin decreased [Recovering/Resolving]
